FAERS Safety Report 7671805-9 (Version None)
Quarter: 2011Q3

REPORT INFORMATION
  Report Type: 
  Country: None (occurrence: None)
  Receive Date: 20110809
  Receipt Date: 20110729
  Transmission Date: 20111222
  Serious: Yes (Life-Threatening, Hospitalization)
  Sender: FDA-Public Use
  Company Number: GB-ROCHE-790736

PATIENT
  Age: 69 Year
  Sex: Male
  Weight: 79 kg

DRUGS (16)
  1. ASPIRIN [Concomitant]
     Route: 048
  2. LANSOPRAZOLE [Concomitant]
     Indication: PROPHYLAXIS
     Route: 048
  3. SIMVASTATIN [Concomitant]
  4. GLICLAZIDE [Concomitant]
     Route: 048
  5. CITALOPRAM HYDROBROMIDE [Concomitant]
  6. DIHYDROCODEINE BITARTRATE INJ [Concomitant]
  7. ALBUTEROL [Concomitant]
     Route: 055
  8. LIDOCAINE [Concomitant]
     Dosage: PLASTER
  9. AMINOPHYLLIN TAB [Concomitant]
     Dosage: DOSE REPORTED AS 500
     Route: 055
  10. PREGABALIN [Concomitant]
     Dosage: 150 MG MORNING AND 200MG EVENING
  11. ACTEMRA [Suspect]
     Route: 042
     Dates: start: 20110519, end: 20110714
  12. METFORMIN HCL [Concomitant]
     Route: 048
  13. MONTELUKAST SODIUM [Concomitant]
  14. ISRADIPINE [Concomitant]
  15. MIRTAZAPINE [Concomitant]
  16. CLONAZEPAM [Concomitant]

REACTIONS (3)
  - BRADYCARDIA [None]
  - PUPILLARY REFLEX IMPAIRED [None]
  - LOSS OF CONSCIOUSNESS [None]
